FAERS Safety Report 14448327 (Version 1)
Quarter: 2018Q1

REPORT INFORMATION
  Report Type: Report from Study
  Country: MX (occurrence: MX)
  Receive Date: 20180126
  Receipt Date: 20180126
  Transmission Date: 20180509
  Serious: Yes (Other)
  Sender: FDA-Public Use
  Company Number: PHHY2017MX073667

PATIENT
  Sex: Female
  Weight: 61 kg

DRUGS (9)
  1. ZOMETA [Suspect]
     Active Substance: ZOLEDRONIC ACID
     Dosage: 4 MG, EVERY 6 MONTHS
     Route: 065
  2. ZOMETA [Suspect]
     Active Substance: ZOLEDRONIC ACID
     Indication: BONE DISORDER
     Dosage: 1 APPLICATION (4 MG/100 ML),  QMO
     Route: 065
     Dates: start: 201612, end: 201701
  3. FENOFIBRATE. [Concomitant]
     Active Substance: FENOFIBRATE
     Indication: BLOOD CHOLESTEROL INCREASED
     Dosage: 1 OT, QD
     Route: 048
     Dates: start: 2017
  4. ZOMETA [Suspect]
     Active Substance: ZOLEDRONIC ACID
     Indication: METASTASES TO BONE
     Dosage: 1 APPLICATION (4 MG/100 ML), ANNUALLY
     Route: 065
     Dates: start: 2002, end: 2016
  5. DOLAREN [Concomitant]
     Indication: PRODUCT USED FOR UNKNOWN INDICATION
     Dosage: UNK
     Route: 065
  6. DICAL [Concomitant]
     Indication: PRODUCT USED FOR UNKNOWN INDICATION
     Dosage: UNK
     Route: 065
  7. FENOFIBRATE. [Concomitant]
     Active Substance: FENOFIBRATE
     Indication: BLOOD TRIGLYCERIDES INCREASED
  8. TRADOL [Concomitant]
     Active Substance: TRAMADOL HYDROCHLORIDE
     Indication: PAIN
     Dosage: 10 OT, UNK
     Route: 048
     Dates: start: 2016
  9. DOLO NERVOBION [Concomitant]
     Indication: PRODUCT USED FOR UNKNOWN INDICATION
     Dosage: UNK
     Route: 065

REACTIONS (12)
  - Spinal pain [Recovered/Resolved]
  - Intervertebral disc protrusion [Unknown]
  - Diabetes mellitus [Not Recovered/Not Resolved]
  - Hyperkeratosis [Unknown]
  - Drug prescribing error [Recovered/Resolved]
  - Inappropriate schedule of drug administration [Recovered/Resolved]
  - Concomitant disease aggravated [Recovered/Resolved]
  - Scoliosis [Recovered/Resolved]
  - Hypertension [Not Recovered/Not Resolved]
  - Hepatic steatosis [Not Recovered/Not Resolved]
  - Urinary tract infection [Not Recovered/Not Resolved]
  - Off label use [Recovered/Resolved]

NARRATIVE: CASE EVENT DATE: 2002
